FAERS Safety Report 5749294-0 (Version None)
Quarter: 2008Q2

REPORT INFORMATION
  Report Type: 
  Country: None (occurrence: None)
  Receive Date: 20080522
  Receipt Date: 20080522
  Transmission Date: 20081010
  Serious: No
  Sender: FDA-Public Use
  Company Number: None

PATIENT

DRUGS (1)
  1. MIDAZOLAM HCL [Suspect]
     Indication: ENDOSCOPY
     Dosage: 6 TO 10MG IV
     Route: 042
     Dates: start: 20080509, end: 20080509

REACTIONS (1)
  - DRUG EFFECT DECREASED [None]
